FAERS Safety Report 9504856 (Version 1)
Quarter: 2013Q3

REPORT INFORMATION
  Report Type: Spontaneous
  Country: US (occurrence: US)
  Receive Date: 20130906
  Receipt Date: 20130906
  Transmission Date: 20140515
  Serious: No
  Sender: FDA-Public Use
  Company Number: US-009507513-1309USA000506

PATIENT
  Sex: Female

DRUGS (1)
  1. AZASITE [Suspect]

REACTIONS (2)
  - Pruritus [Unknown]
  - Incorrect route of drug administration [Unknown]
